FAERS Safety Report 9463797 (Version 2)
Quarter: 2013Q4

REPORT INFORMATION
  Report Type: Spontaneous
  Country: US (occurrence: US)
  Receive Date: 20130819
  Receipt Date: 20131209
  Transmission Date: 20140711
  Serious: Yes (Other)
  Sender: FDA-Public Use
  Company Number: US-ASTELLAS-2013US008644

PATIENT
  Age: 81 Year
  Sex: Male
  Weight: 81 kg

DRUGS (3)
  1. XTANDI [Suspect]
     Indication: PROSTATE CANCER
     Dosage: 160 MG, UID/QD
     Route: 048
     Dates: start: 20130523
  2. PLAVIX [Concomitant]
     Indication: BLOOD PRESSURE
     Dosage: 75 MG, UID/QD
     Route: 048
     Dates: start: 20130523
  3. TAMSULOSIN [Concomitant]
     Indication: PROSTATIC DISORDER
     Dosage: UNK
     Route: 065
     Dates: start: 2011

REACTIONS (2)
  - Drug interaction [Unknown]
  - Headache [Unknown]
